FAERS Safety Report 23518131 (Version 1)
Quarter: 2024Q1

REPORT INFORMATION
  Report Type: Spontaneous
  Country: FR (occurrence: FR)
  Receive Date: 20240213
  Receipt Date: 20240213
  Transmission Date: 20240409
  Serious: Yes (Hospitalization)
  Sender: FDA-Public Use
  Company Number: FR-Merck Healthcare KGaA-9234838

PATIENT
  Sex: Female

DRUGS (6)
  1. EUTHYROX [Suspect]
     Active Substance: LEVOTHYROXINE SODIUM
     Indication: Post procedural hypothyroidism
     Route: 048
  2. EUTHYROX [Suspect]
     Active Substance: LEVOTHYROXINE SODIUM
  3. EUTHYROX [Suspect]
     Active Substance: LEVOTHYROXINE SODIUM
     Dosage: 1 DAY 100 (UNSPECIFIED UNITS) AND 1 DAY 75 (UNSPECIFIED UNITS).
  4. NEBIVOLOL HYDROCHLORIDE [Concomitant]
     Active Substance: NEBIVOLOL HYDROCHLORIDE
     Indication: Product used for unknown indication
  5. OMEPRAZOLE [Concomitant]
     Active Substance: OMEPRAZOLE
     Indication: Product used for unknown indication
  6. MORPHINE [Concomitant]
     Active Substance: MORPHINE
     Indication: Product used for unknown indication
     Dosage: TWICE DAILY ORODISPERSIBLE / TWICE DAILY TABLETS

REACTIONS (8)
  - Hospitalisation [Unknown]
  - Fatigue [Not Recovered/Not Resolved]
  - Hyperthyroidism [Unknown]
  - Insomnia [Unknown]
  - Palpitations [Unknown]
  - Blood thyroid stimulating hormone decreased [Unknown]
  - Hyperhidrosis [Unknown]
  - Diarrhoea [Unknown]
